FAERS Safety Report 25412072 (Version 1)
Quarter: 2025Q2

REPORT INFORMATION
  Report Type: Spontaneous
  Country: GB (occurrence: GB)
  Receive Date: 20250609
  Receipt Date: 20250609
  Transmission Date: 20250717
  Serious: Yes (Other)
  Sender: ABBVIE
  Company Number: None

PATIENT
  Age: 62 Year
  Sex: Male

DRUGS (1)
  1. ESCITALOPRAM [Suspect]
     Active Substance: ESCITALOPRAM OXALATE
     Indication: Depression
     Route: 048

REACTIONS (5)
  - Wheezing [Recovering/Resolving]
  - Sleep deficit [Not Recovered/Not Resolved]
  - Migraine [Recovering/Resolving]
  - Blood iron [Recovered/Resolved]
  - Illness [Recovering/Resolving]
